FAERS Safety Report 10192656 (Version 1)
Quarter: 2014Q2

REPORT INFORMATION
  Report Type: Report from Study
  Country: BR (occurrence: BR)
  Receive Date: 20140523
  Receipt Date: 20140523
  Transmission Date: 20141212
  Serious: Yes (Other)
  Sender: FDA-Public Use
  Company Number: BR-BAXTER-2014BAX025259

PATIENT
  Sex: 0

DRUGS (3)
  1. GENUXAL [Suspect]
     Indication: PLASMA CELL MYELOMA
     Dosage: ON DAYS 1, 8, 15
     Route: 048
  2. THALIDOMIDE [Suspect]
     Indication: PLASMA CELL MYELOMA
     Dosage: ON DAYS 1 TO 28
     Route: 048
  3. DEXAMETHASONE [Suspect]
     Indication: PLASMA CELL MYELOMA
     Dosage: DAY 1 TO 5; 14 TO 18
     Route: 048

REACTIONS (1)
  - Disease progression [Unknown]
